FAERS Safety Report 17863848 (Version 1)
Quarter: 2020Q2

REPORT INFORMATION
  Report Type: Spontaneous
  Country: TR (occurrence: TR)
  Receive Date: 20200605
  Receipt Date: 20200605
  Transmission Date: 20200714
  Serious: No
  Sender: FDA-Public Use
  Company Number: TR-ALKEM LABORATORIES LIMITED-TR-ALKEM-2020-00817

PATIENT
  Age: 32 Month
  Sex: Female
  Weight: 10.7 kg

DRUGS (15)
  1. CINACALCET. [Suspect]
     Active Substance: CINACALCET
     Indication: HEREDITARY HYPOPHOSPHATAEMIC RICKETS
  2. CALCIUM CARBONATE. [Suspect]
     Active Substance: CALCIUM CARBONATE
     Indication: HYPERPARATHYROIDISM
     Dosage: 2 GRAM, QD
     Route: 048
  3. CINACALCET. [Suspect]
     Active Substance: CINACALCET
     Indication: HYPERPARATHYROIDISM
     Dosage: 0.25 MILLIGRAM/KILOGRAM, QD
     Route: 065
  4. CINACALCET. [Suspect]
     Active Substance: CINACALCET
     Indication: HYPOPHOSPHATAEMIA
  5. CALCIUM CARBONATE. [Suspect]
     Active Substance: CALCIUM CARBONATE
     Dosage: UNK
  6. CALCITRIOL. [Suspect]
     Active Substance: CALCITRIOL
     Indication: HYPOPHOSPHATAEMIA
  7. PHOSPHORUS [Concomitant]
     Active Substance: PHOSPHORUS
     Indication: HYPERPARATHYROIDISM
     Dosage: 1000 MILLIGRAM, QD
     Route: 065
  8. PHOSPHORUS [Concomitant]
     Active Substance: PHOSPHORUS
     Indication: HYPOPHOSPHATAEMIA
  9. CALCIUM CARBONATE. [Suspect]
     Active Substance: CALCIUM CARBONATE
     Indication: HYPOPHOSPHATAEMIA
     Dosage: 4 GRAM, QD
     Route: 048
  10. CALCIUM CARBONATE. [Suspect]
     Active Substance: CALCIUM CARBONATE
     Dosage: 4 GRAM, QD
     Route: 048
  11. CALCITRIOL. [Suspect]
     Active Substance: CALCITRIOL
     Indication: HYPERPARATHYROIDISM
     Dosage: 6 MICROGRAM, QD
     Route: 065
  12. PHOSPHORUS [Concomitant]
     Active Substance: PHOSPHORUS
     Indication: HEREDITARY HYPOPHOSPHATAEMIC RICKETS
  13. CALCIUM CARBONATE. [Suspect]
     Active Substance: CALCIUM CARBONATE
     Indication: HEREDITARY HYPOPHOSPHATAEMIC RICKETS
     Dosage: 150 MICROGRAM/KILOGRAM, QD
     Route: 042
  14. CALCIUM CARBONATE. [Suspect]
     Active Substance: CALCIUM CARBONATE
     Dosage: 150 MICROGRAM/KILOGRAM
     Route: 042
  15. CALCITRIOL. [Suspect]
     Active Substance: CALCITRIOL
     Indication: HEREDITARY HYPOPHOSPHATAEMIC RICKETS
     Dosage: 2 MICROGRAM, QD
     Route: 065

REACTIONS (2)
  - Hypocalcaemia [Unknown]
  - Drug ineffective [Unknown]
